FAERS Safety Report 17130979 (Version 1)
Quarter: 2019Q4

REPORT INFORMATION
  Report Type: Spontaneous
  Country: IL (occurrence: IL)
  Receive Date: 20191209
  Receipt Date: 20191209
  Transmission Date: 20200122
  Serious: Yes (Hospitalization, Other)
  Sender: FDA-Public Use
  Company Number: NVSC2019IL060760

PATIENT
  Age: 28 Year
  Sex: Female

DRUGS (3)
  1. PROGRAF [Suspect]
     Active Substance: TACROLIMUS
     Indication: PRODUCT USED FOR UNKNOWN INDICATION
     Route: 065
  2. DESOGESTREL/ETINESTADIOL [Concomitant]
     Indication: CONTRACEPTION
     Dosage: UNK
     Route: 065
  3. MYFORTIC [Suspect]
     Active Substance: MYCOPHENOLATE SODIUM
     Indication: PRODUCT USED FOR UNKNOWN INDICATION
     Route: 065

REACTIONS (7)
  - Blood parathyroid hormone increased [Recovered/Resolved]
  - Hypercalcaemia [Unknown]
  - Urine calcium decreased [Unknown]
  - Renal failure [Unknown]
  - Hypocitraturia [Unknown]
  - Lithiasis [Unknown]
  - Blood pressure decreased [Unknown]
